FAERS Safety Report 4638306-3 (Version None)
Quarter: 2005Q2

REPORT INFORMATION
  Report Type: 
  Country: None (occurrence: None)
  Receive Date: 20050418
  Receipt Date: 20050411
  Transmission Date: 20051028
  Serious: Yes (Other)
  Sender: FDA-Public Use
  Company Number: US-MERCK-0504USA01872

PATIENT
  Age: 10 Year
  Sex: Male

DRUGS (3)
  1. PREDNISONE [Suspect]
     Indication: ASTHMA
     Route: 048
  2. METHYLPREDNISOLONE [Suspect]
     Indication: ASTHMA
     Route: 042
  3. DECADRON SRC [Suspect]
     Indication: ASTHMA
     Route: 055

REACTIONS (11)
  - CEREBRAL DISORDER [None]
  - COGNITIVE DISORDER [None]
  - COMPUTERISED TOMOGRAM ABNORMAL [None]
  - DEMENTIA [None]
  - DEPRESSION [None]
  - DISTURBANCE IN ATTENTION [None]
  - FACE OEDEMA [None]
  - HYPERACUSIS [None]
  - MEMORY IMPAIRMENT [None]
  - MUSCULAR WEAKNESS [None]
  - PSYCHOTIC DISORDER [None]
